FAERS Safety Report 25660712 (Version 1)
Quarter: 2025Q3

REPORT INFORMATION
  Report Type: Spontaneous
  Country: US (occurrence: US)
  Receive Date: 20250808
  Receipt Date: 20250808
  Transmission Date: 20251021
  Serious: Yes (Other)
  Sender: JOHNSON AND JOHNSON
  Company Number: US-JNJFOC-20250738234

PATIENT
  Sex: Male

DRUGS (4)
  1. TALVEY [Suspect]
     Active Substance: TALQUETAMAB-TGVS
     Indication: Plasma cell myeloma
     Dates: start: 20250714
  2. TALVEY [Suspect]
     Active Substance: TALQUETAMAB-TGVS
     Dates: start: 20250716
  3. TALVEY [Suspect]
     Active Substance: TALQUETAMAB-TGVS
     Dates: start: 20250719
  4. TALVEY [Suspect]
     Active Substance: TALQUETAMAB-TGVS
     Dates: start: 20250721

REACTIONS (2)
  - Cytokine release syndrome [Unknown]
  - Paraesthesia [Not Recovered/Not Resolved]
